FAERS Safety Report 8181514 (Version 2)
Quarter: 2013Q2

REPORT INFORMATION
  Report Type: Report from Study
  Country: FR (occurrence: FR)
  Receive Date: 20111014
  Receipt Date: 20130415
  Transmission Date: 20140414
  Serious: Yes (Other)
  Sender: FDA-Public Use
  Company Number: FR-ROCHE-1004320

PATIENT
  Age: 73 Year
  Sex: Female

DRUGS (7)
  1. RITUXIMAB [Suspect]
     Indication: CHRONIC LYMPHOCYTIC LEUKAEMIA
     Dosage: LAST DOSE OF RITUXIMAB BEFORE SAE: 30-JUN-2011
     Route: 041
     Dates: start: 20090126
  2. RITUXIMAB [Suspect]
     Dosage: LAST DOSE OF RITUXIMAB BEFORE SAE: 30-JUN-2011
     Route: 041
     Dates: start: 20090825, end: 20110630
  3. FLUDARA [Suspect]
     Indication: CHRONIC LYMPHOCYTIC LEUKAEMIA
     Route: 002
     Dates: start: 20090126, end: 20090422
  4. ENDOXAN [Suspect]
     Indication: CHRONIC LYMPHOCYTIC LEUKAEMIA
     Route: 002
     Dates: start: 20090126, end: 20090422
  5. SELOKEN [Concomitant]
     Route: 065
  6. ECAZIDE [Concomitant]
  7. ELISOR [Concomitant]
     Route: 065

REACTIONS (1)
  - Basal cell carcinoma [Recovered/Resolved]
